FAERS Safety Report 5358994-6 (Version None)
Quarter: 2007Q2

REPORT INFORMATION
  Report Type: 
  Country: None (occurrence: None)
  Receive Date: 20070615
  Receipt Date: 20070605
  Transmission Date: 20071010
  Serious: Yes (Other)
  Sender: FDA-Public Use
  Company Number: HQWYE502706JUN07

PATIENT
  Age: 78 Year
  Sex: Male

DRUGS (2)
  1. PROTONIX [Suspect]
     Dosage: 40 MG FREQUENCY UNSPECIFIED
     Route: 042
     Dates: start: 20070501, end: 20070501
  2. PROTONIX [Suspect]
     Route: 042
     Dates: start: 20070501, end: 20070602

REACTIONS (1)
  - THROMBOCYTOPENIA [None]
